FAERS Safety Report 11188545 (Version 1)
Quarter: 2015Q2

REPORT INFORMATION
  Report Type: Report from Study
  Country: US (occurrence: US)
  Receive Date: 20150615
  Receipt Date: 20150615
  Transmission Date: 20150821
  Serious: Yes (Hospitalization)
  Sender: FDA-Public Use
  Company Number: US-ROCHE-661107

PATIENT
  Age: 51 Year
  Sex: Female

DRUGS (3)
  1. CISPLATIN. [Suspect]
     Active Substance: CISPLATIN
     Indication: CERVIX CARCINOMA
     Dosage: ON DAY 2
     Route: 042
  2. PACLITAXEL. [Suspect]
     Active Substance: PACLITAXEL
     Indication: CERVIX CARCINOMA
     Dosage: ON DAY 1
     Route: 042
  3. BEVACIZUMAB [Suspect]
     Active Substance: BEVACIZUMAB
     Indication: CERVIX CARCINOMA
     Dosage: LAST DOSE PRIOR TO SAE: 01/JUL/2009?LAST DOSE PRIOR TO SAE: 04/SEP/2009
     Route: 042
     Dates: start: 20090609

REACTIONS (10)
  - Hypokalaemia [Unknown]
  - Rectal haemorrhage [Unknown]
  - Oesophagitis [Recovered/Resolved]
  - Hypotension [Recovered/Resolved]
  - Anal ulcer [Unknown]
  - Dehydration [Unknown]
  - Vaginal haemorrhage [Unknown]
  - Anal fistula [Unknown]
  - Anaemia [Unknown]
  - Hyponatraemia [Unknown]

NARRATIVE: CASE EVENT DATE: 20090707
